FAERS Safety Report 18445506 (Version 1)
Quarter: 2020Q4

REPORT INFORMATION
  Report Type: Spontaneous
  Country: US (occurrence: US)
  Receive Date: 20201030
  Receipt Date: 20201030
  Transmission Date: 20210114
  Serious: Yes (Hospitalization)
  Sender: FDA-Public Use
  Company Number: US-REDHILL BIOPHARMA-2020RDH04089

PATIENT
  Age: 50 Year
  Sex: Female
  Weight: 45.35 kg

DRUGS (1)
  1. TALICIA [Suspect]
     Active Substance: AMOXICILLIN\OMEPRAZOLE MAGNESIUM\RIFABUTIN
     Indication: HELICOBACTER GASTRITIS
     Dosage: 4 TABLETS, 3X/DAY
     Route: 048
     Dates: start: 20200724, end: 20200806

REACTIONS (12)
  - Weight decreased [Unknown]
  - Dyspepsia [Not Recovered/Not Resolved]
  - Gastrooesophageal reflux disease [Not Recovered/Not Resolved]
  - Arthralgia [Unknown]
  - Feeding disorder [Not Recovered/Not Resolved]
  - Malnutrition [Not Recovered/Not Resolved]
  - Gastrointestinal disorder [Not Recovered/Not Resolved]
  - Rash [Unknown]
  - Oesophageal spasm [Unknown]
  - Oral mucosal eruption [Unknown]
  - Oral candidiasis [Unknown]
  - Myalgia [Unknown]

NARRATIVE: CASE EVENT DATE: 2020
